FAERS Safety Report 7211843-3 (Version None)
Quarter: 2011Q1

REPORT INFORMATION
  Report Type: 
  Country: None (occurrence: None)
  Receive Date: 20110106
  Receipt Date: 20101223
  Transmission Date: 20110831
  Serious: Yes (Death, Hospitalization, Other)
  Sender: FDA-Public Use
  Company Number: US-ACTELION-A-NJ2009-34755

PATIENT

DRUGS (16)
  1. SUCRALFATE [Concomitant]
  2. POTASSIUM CHLORIDE [Concomitant]
  3. SILDENAFIL [Concomitant]
     Dosage: UNK
     Dates: start: 20090514
  4. SIMVASTATIN [Concomitant]
  5. BOSENTAN TABLET 125 MG US [Suspect]
     Indication: PULMONARY ARTERIAL HYPERTENSION
     Dosage: 125 MG, BID
     Route: 048
     Dates: start: 20090923, end: 20101202
  6. NIFEDIPINE [Concomitant]
  7. ASCORBIC ACID [Concomitant]
  8. ONDANSETRON HYDROCHLORIDE [Concomitant]
  9. HYDROCHLOROTHIAZIDE [Concomitant]
  10. RANITIDINE HYDROCHLORIDE [Concomitant]
  11. ACETAMINOPHEN [Concomitant]
  12. CALCIUM CARBONATE [Concomitant]
  13. LORAZEPAM [Concomitant]
  14. OXYCODONE HCL [Concomitant]
  15. ACETYLSALICYLIC ACID [Concomitant]
  16. METOPROLOL TARTRATE [Concomitant]

REACTIONS (7)
  - PLEURAL EFFUSION [None]
  - CHEST PAIN [None]
  - PERICARDIAL EFFUSION [None]
  - DYSPNOEA [None]
  - THORACIC CAVITY DRAINAGE [None]
  - LUNG ADENOCARCINOMA METASTATIC [None]
  - PERICARDIAL DRAINAGE [None]
